FAERS Safety Report 5241390-X (Version None)
Quarter: 2007Q1

REPORT INFORMATION
  Report Type: 
  Country: None (occurrence: None)
  Receive Date: 20070220
  Receipt Date: 20070208
  Transmission Date: 20070707
  Serious: Yes (Hospitalization)
  Sender: FDA-Public Use
  Company Number: GB-PURDUE-GBR_2007_0002781

PATIENT
  Age: 81 Year
  Sex: Female

DRUGS (23)
  1. OXYCONTIN TABLETS 10 MG [Suspect]
     Indication: PROCEDURAL PAIN
     Dosage: 10 MG, BID
     Route: 048
     Dates: start: 20070124, end: 20070126
  2. ENOXAPARIN SODIUM [Concomitant]
     Indication: THROMBOSIS PROPHYLAXIS
     Dosage: 40 MG, DAILY
     Route: 058
     Dates: start: 20070124
  3. PARACETAMOL [Concomitant]
     Indication: PROCEDURAL PAIN
     Dosage: 1 GRAM, QID
     Route: 042
     Dates: start: 20070124
  4. ATENOLOL [Concomitant]
     Indication: HYPERTENSION
     Dosage: 25 MG, DAILY
     Route: 048
     Dates: start: 20070125
  5. EPILIM [Concomitant]
     Indication: EPILEPSY
     Dosage: 200 MG, BID
     Route: 048
     Dates: start: 20070124
  6. SIMVASTATIN [Concomitant]
     Indication: HYPERCHOLESTEROLAEMIA
     Dosage: 10 MG, DAILY
     Route: 048
     Dates: start: 20070124
  7. CYCLIZINE [Concomitant]
     Indication: PROCEDURAL NAUSEA
     Dosage: 25 MG, TID
     Route: 042
     Dates: start: 20070124
  8. ONDANSETRON [Concomitant]
     Indication: PROCEDURAL NAUSEA
     Dosage: 4 MG, TID
     Route: 042
     Dates: start: 20070124
  9. MORPHINE [Concomitant]
     Indication: BREAKTHROUGH PAIN
     Dosage: 5-7.5 MG
     Route: 065
     Dates: start: 20070124
  10. CEFUROXIME [Concomitant]
     Indication: DRUG USE FOR UNKNOWN INDICATION
     Dosage: 1.5 GRAM, UNK
     Route: 042
     Dates: start: 20070124
  11. GENTAMICIN SULFATE [Concomitant]
     Indication: DRUG USE FOR UNKNOWN INDICATION
     Dosage: 120 MG, UNK
     Route: 042
     Dates: start: 20070124
  12. CIPROFLOXACIN [Concomitant]
     Indication: DRUG USE FOR UNKNOWN INDICATION
     Dosage: 500 MG, UNK
     Route: 048
     Dates: start: 20070125
  13. LISINOPRIL [Concomitant]
     Indication: HYPERTENSION
     Dosage: 20 MG, DAILY
     Route: 048
     Dates: start: 20070125
  14. INDAPAMIDE [Concomitant]
     Indication: HYPERTENSION
     Dosage: 1.5 MG, DAILY
     Route: 048
     Dates: start: 20070125
  15. COLPERMIN [Concomitant]
     Indication: ABDOMINAL DISCOMFORT
     Dosage: 1-2 CAPS, TID
     Route: 048
     Dates: start: 20070124
  16. GAVISCON [Concomitant]
     Indication: DYSPEPSIA
     Dosage: 10 ML, UNK
     Route: 048
     Dates: start: 20070126
  17. CODEINE [Concomitant]
     Indication: PROCEDURAL PAIN
     Dosage: 30-60MG, QID
     Route: 048
     Dates: start: 20070126
  18. OXYNORM [Concomitant]
     Indication: BREAKTHROUGH PAIN
     Dosage: 5-10 MG
     Route: 048
     Dates: start: 20070124
  19. HARTMANN'S SOLUTION [Concomitant]
     Indication: POSTOPERATIVE CARE
     Dosage: 250 ML/HR, UNK
  20. SODIUM CHLORIDE [Concomitant]
     Indication: POSTOPERATIVE CARE
     Dosage: 150 ML/HR, UNK
     Dates: start: 20070124
  21. SODIUM CHLORIDE [Concomitant]
     Dosage: 100 ML/HR, UNK
     Dates: start: 20070124
  22. DEXTROSE [Concomitant]
     Indication: POSTOPERATIVE CARE
     Dosage: 100 ML/HR, UNK
  23. VOLUVEN [Concomitant]
     Dosage: 250 UNK, UNK
     Dates: start: 20070124

REACTIONS (2)
  - CIRCULATORY COLLAPSE [None]
  - HYPOTENSION [None]
